FAERS Safety Report 8009478-8 (Version None)
Quarter: 2011Q4

REPORT INFORMATION
  Report Type: 
  Country: None (occurrence: None)
  Receive Date: 20111227
  Receipt Date: 20111219
  Transmission Date: 20120403
  Serious: Yes (Death)
  Sender: FDA-Public Use
  Company Number: AU-BAXTER-2011BH039923

PATIENT
  Age: 38 Year
  Sex: Female

DRUGS (3)
  1. TRAVASOL 10% W/ ELECTROLYTES [Suspect]
     Indication: NUTRITIONAL SUPPORT
     Route: 065
  2. DEXTROSE 10% [Suspect]
     Indication: NUTRITIONAL SUPPORT
     Route: 065
  3. CLINOLEIC 20% [Suspect]
     Indication: NUTRITIONAL SUPPORT
     Dosage: DOSE UNIT:UNKNOWN
     Route: 065

REACTIONS (1)
  - CARDIAC FAILURE [None]
